FAERS Safety Report 4885566-X (Version None)
Quarter: 2005Q4

REPORT INFORMATION
  Report Type: 
  Country: None (occurrence: None)
  Receive Date: 20051220
  Receipt Date: 20050114
  Transmission Date: 20060501
  Serious: Yes (Hospitalization, Other)
  Sender: FDA-Public Use
  Company Number: HQWYE658117JAN05

PATIENT
  Age: 36 Year
  Sex: Male

DRUGS (4)
  1. EFFEXOR XR [Suspect]
     Indication: GENERALISED ANXIETY DISORDER
     Dosage: SEE IMAGE
     Route: 048
     Dates: start: 20050105, end: 20050107
  2. EFFEXOR XR [Suspect]
     Indication: GENERALISED ANXIETY DISORDER
     Dosage: SEE IMAGE
     Route: 048
     Dates: start: 20050108, end: 20050110
  3. EFFEXOR XR [Suspect]
     Indication: GENERALISED ANXIETY DISORDER
     Dosage: SEE IMAGE
     Route: 048
     Dates: start: 20050111, end: 20050112
  4. ATIVAN [Concomitant]

REACTIONS (1)
  - ATRIAL FIBRILLATION [None]
